FAERS Safety Report 6499867-5 (Version None)
Quarter: 2009Q4

REPORT INFORMATION
  Report Type: 
  Country: None (occurrence: None)
  Receive Date: 20091214
  Receipt Date: 20091214
  Transmission Date: 20100525
  Serious: Yes (Death)
  Sender: FDA-Public Use
  Company Number: None

PATIENT
  Sex: Male
  Weight: 99.7913 kg

DRUGS (5)
  1. PORCINE HEPARIN 5,000 UNITS PER ML. 10 ML AMERICAN PHARMACEUTICAL. [Suspect]
     Indication: AORTIC INJURY
     Dosage: 50,000 UNITS SINGLE DOSE IV BOLUS
     Route: 040
     Dates: start: 20071226, end: 20071226
  2. PORCINE HEPARIN 5,000 UNITS PER ML. 10 ML AMERICAN PHARMACEUTICAL. [Suspect]
     Indication: AORTIC INJURY
     Dosage: 50,000 UNITS SINGLE DOSE IV BOLUS
     Route: 040
     Dates: start: 20071226, end: 20071226
  3. BEBULIN [Concomitant]
  4. VITAMIN K TAB [Concomitant]
  5. FRESH FROZEN PLASMA [Concomitant]

REACTIONS (4)
  - BLOOD PRESSURE IMMEASURABLE [None]
  - CARDIAC ARREST [None]
  - HYPOTENSION [None]
  - OPERATIVE HAEMORRHAGE [None]
